FAERS Safety Report 11716393 (Version 1)
Quarter: 2015Q4

REPORT INFORMATION
  Report Type: Spontaneous
  Country: BR (occurrence: BR)
  Receive Date: 20151109
  Receipt Date: 20151109
  Transmission Date: 20160304
  Serious: Yes (Other)
  Sender: FDA-Public Use
  Company Number: BR-UCBSA-2015035403

PATIENT
  Age: 77 Year
  Sex: Male
  Weight: 70 kg

DRUGS (4)
  1. LEVOTHYROXINE SODIUM. [Concomitant]
     Active Substance: LEVOTHYROXINE SODIUM
     Indication: HYPOTHYROIDISM
     Dosage: 150 MCI/G
     Route: 050
  2. VIMPAT [Suspect]
     Active Substance: LACOSAMIDE
     Indication: SEIZURE
     Dosage: 50 MG, (UNKNOWN FREQUENCY) VIA VIA GASTRIC CATHETER
  3. PRESSAT [Concomitant]
     Active Substance: AMLODIPINE BESYLATE
     Indication: HYPERTENSION
     Dosage: 5 MG, ONCE DAILY (QD)
     Route: 050
  4. VIMPAT [Suspect]
     Active Substance: LACOSAMIDE
     Dosage: 100 MG, (UNKNOWN FREQUENCY) VIA GASTRIC CATHETER

REACTIONS (3)
  - Productive cough [Unknown]
  - Asthmatic crisis [Unknown]
  - Pruritus generalised [Unknown]
